FAERS Safety Report 20973282 (Version 1)
Quarter: 2022Q2

REPORT INFORMATION
  Report Type: Spontaneous
  Country: US (occurrence: US)
  Receive Date: 20220617
  Receipt Date: 20220617
  Transmission Date: 20220721
  Serious: No
  Sender: FDA-Public Use
  Company Number: US-ENDO PHARMACEUTICALS INC-2022-002300

PATIENT
  Sex: Male

DRUGS (2)
  1. SUPPRELIN LA [Suspect]
     Active Substance: HISTRELIN ACETATE
     Indication: Gender dysphoria
     Dosage: 50 MG, EVERY 12 MONTHS
     Route: 058
     Dates: start: 20200722
  2. SUPPRELIN LA [Suspect]
     Active Substance: HISTRELIN ACETATE
     Indication: Gender dysphoria
     Dosage: 50 MG, EVERY 12 MONTHS
     Route: 058
     Dates: start: 20200722

REACTIONS (2)
  - Diarrhoea [Unknown]
  - Off label use [Unknown]
